FAERS Safety Report 25291833 (Version 1)
Quarter: 2025Q2

REPORT INFORMATION
  Report Type: Spontaneous
  Country: US (occurrence: US)
  Receive Date: 20250510
  Receipt Date: 20250510
  Transmission Date: 20250716
  Serious: No
  Sender: SANOFI AVENTIS
  Company Number: US-SA-2025SA117438

PATIENT
  Sex: Female

DRUGS (21)
  1. DUPIXENT [Suspect]
     Active Substance: DUPILUMAB
     Indication: Chronic obstructive pulmonary disease
     Dosage: 300 MG, QOW
     Route: 058
  2. ALPRAZOLAM [Concomitant]
     Active Substance: ALPRAZOLAM
  3. AMITRIPTYLINE [Concomitant]
     Active Substance: AMITRIPTYLINE
  4. AMLODIPINE BESYLATE [Interacting]
     Active Substance: AMLODIPINE BESYLATE
  5. AZELASTINE HYDROCHLORIDE [Concomitant]
     Active Substance: AZELASTINE HYDROCHLORIDE
  6. AZITHROMYCIN [Concomitant]
     Active Substance: AZITHROMYCIN
  7. BACLOFEN [Concomitant]
     Active Substance: BACLOFEN
  8. ESCITALOPRAM [Concomitant]
     Active Substance: ESCITALOPRAM OXALATE
  9. FLONASE ALLERGY RELIEF [Concomitant]
     Active Substance: FLUTICASONE PROPIONATE
  10. FUROSEMIDE [Concomitant]
     Active Substance: FUROSEMIDE
  11. IPRATROPIUM [Concomitant]
     Active Substance: IPRATROPIUM
  12. MONTELUKAST [Concomitant]
     Active Substance: MONTELUKAST
  13. MUCINEX [Concomitant]
     Active Substance: GUAIFENESIN
  14. MULTI [Concomitant]
  15. OMEPRAZOLE [Concomitant]
     Active Substance: OMEPRAZOLE
  16. PREDNISONE [Concomitant]
     Active Substance: PREDNISONE
  17. PREGABALIN [Concomitant]
     Active Substance: PREGABALIN
  18. ROFLUMILAST [Concomitant]
     Active Substance: ROFLUMILAST
  19. ROSUVASTATIN [Concomitant]
     Active Substance: ROSUVASTATIN
  20. TRAMADOL HCL [Concomitant]
     Active Substance: TRAMADOL HYDROCHLORIDE
  21. VITAMIN D3 [Concomitant]
     Active Substance: CHOLECALCIFEROL

REACTIONS (1)
  - Product dose omission in error [Unknown]
